FAERS Safety Report 13613917 (Version 1)
Quarter: 2017Q2

REPORT INFORMATION
  Report Type: Spontaneous
  Country: US (occurrence: US)
  Receive Date: 20170606
  Receipt Date: 20170606
  Transmission Date: 20170830
  Serious: No
  Sender: FDA-Public Use
  Company Number: US-TEVA-741286ACC

PATIENT
  Sex: Female

DRUGS (1)
  1. MINOXIDIL TSOL MN [Suspect]
     Active Substance: MINOXIDIL
     Dosage: AS DIRECTED DAILY
     Dates: start: 1997

REACTIONS (2)
  - Intentional product misuse [None]
  - Hirsutism [Unknown]

NARRATIVE: CASE EVENT DATE: 1997
